FAERS Safety Report 20478799 (Version 1)
Quarter: 2022Q1

REPORT INFORMATION
  Report Type: Report from Study
  Country: US (occurrence: US)
  Receive Date: 20220216
  Receipt Date: 20220216
  Transmission Date: 20220423
  Serious: Yes (Disabling, Other)
  Sender: FDA-Public Use
  Company Number: US-GILEAD-2022-0569621

PATIENT
  Age: 62 Year
  Sex: Male

DRUGS (1)
  1. EFAVIRENZ\EMTRICITABINE\TENOFOVIR DISOPROXIL FUMARATE [Suspect]
     Active Substance: EFAVIRENZ\EMTRICITABINE\TENOFOVIR DISOPROXIL FUMARATE
     Indication: HIV infection
     Dosage: 1100 MG, QD
     Route: 048
     Dates: start: 2013, end: 2015

REACTIONS (2)
  - Bone density decreased [Unknown]
  - Leg amputation [Unknown]

NARRATIVE: CASE EVENT DATE: 20130101
